FAERS Safety Report 16072821 (Version 1)
Quarter: 2019Q1

REPORT INFORMATION
  Report Type: Spontaneous
  Country: US (occurrence: US)
  Receive Date: 20190213
  Receipt Date: 20190213
  Transmission Date: 20190418
  Serious: Yes (Death)
  Sender: FDA-Public Use
  Company Number: None

PATIENT
  Age: 15 Year
  Sex: Male

DRUGS (9)
  1. METHYLPHENIDATE. [Concomitant]
     Active Substance: METHYLPHENIDATE
  2. TEMOZOLOMIDE 100 MG CAPSULE [Suspect]
     Active Substance: TEMOZOLOMIDE
     Indication: BRAIN NEOPLASM MALIGNANT
     Route: 048
     Dates: start: 20180115
  3. SMZ-TMP [Concomitant]
     Active Substance: SULFAMETHOXAZOLE\TRIMETHOPRIM
  4. DECADRON [Concomitant]
     Active Substance: DEXAMETHASONE
  5. TEMOZOLOMIDE 10 MG AND 5 MG CAP [Suspect]
     Active Substance: TEMOZOLOMIDE
     Indication: BRAIN NEOPLASM MALIGNANT
     Dosage: 20,10 MG QD PO
     Route: 048
  6. LEVETIRACETAM. [Concomitant]
     Active Substance: LEVETIRACETAM
  7. CYPROHEPTAD [Concomitant]
  8. KEPPRA [Concomitant]
     Active Substance: LEVETIRACETAM
  9. PEPCID [Concomitant]
     Active Substance: FAMOTIDINE

REACTIONS (1)
  - Death [None]

NARRATIVE: CASE EVENT DATE: 20190204
